FAERS Safety Report 21023245 (Version 3)
Quarter: 2022Q3

REPORT INFORMATION
  Report Type: Report from Study
  Country: NL (occurrence: NL)
  Receive Date: 20220629
  Receipt Date: 20220727
  Transmission Date: 20221026
  Serious: Yes (Death, Other)
  Sender: FDA-Public Use
  Company Number: NL-GILEAD-2022-0587631

PATIENT
  Age: 43 Year
  Sex: Female

DRUGS (1)
  1. SACITUZUMAB GOVITECAN [Suspect]
     Active Substance: SACITUZUMAB GOVITECAN
     Indication: Triple negative breast cancer
     Dosage: 2 CYCLES RECEIVED, LAST DOSE C2D8
     Route: 042
     Dates: end: 20220519

REACTIONS (3)
  - Death [Fatal]
  - Disease progression [Unknown]
  - General physical health deterioration [Not Recovered/Not Resolved]
